FAERS Safety Report 9162675 (Version 2)
Quarter: 2013Q2

REPORT INFORMATION
  Report Type: Spontaneous
  Country: IN (occurrence: IN)
  Receive Date: 20130314
  Receipt Date: 20130401
  Transmission Date: 20140414
  Serious: Yes (Death, Other)
  Sender: FDA-Public Use
  Company Number: IN-BRISTOL-MYERS SQUIBB COMPANY-17447350

PATIENT
  Age: 54 Year
  Sex: Male

DRUGS (1)
  1. BARACLUDE TABS 0.5 MG [Suspect]
     Dosage: 1DF:1 TAB
     Dates: start: 20120208, end: 20130122

REACTIONS (3)
  - Renal failure [Fatal]
  - Sepsis [Unknown]
  - Cellulitis [Unknown]
